FAERS Safety Report 19300586 (Version 1)
Quarter: 2021Q2

REPORT INFORMATION
  Report Type: Spontaneous
  Country: US (occurrence: US)
  Receive Date: 20210525
  Receipt Date: 20210525
  Transmission Date: 20210717
  Serious: No
  Sender: FDA-Public Use
  Company Number: None

PATIENT
  Age: 64 Year
  Sex: Female
  Weight: 144 kg

DRUGS (5)
  1. ZINC. [Concomitant]
     Active Substance: ZINC
  2. JANUVIA [Suspect]
     Active Substance: SITAGLIPTIN PHOSPHATE
     Indication: DIABETES MELLITUS
     Dosage: ?          QUANTITY:1 TABLET(S);?
     Route: 048
  3. MELATONIN [Concomitant]
     Active Substance: MELATONIN
  4. VITAMIN D [Concomitant]
     Active Substance: VITAMIN D NOS
  5. VITAMIN C [Concomitant]
     Active Substance: ASCORBIC ACID

REACTIONS (4)
  - Gastric disorder [None]
  - Dyspnoea [None]
  - Diarrhoea [None]
  - Chest pain [None]

NARRATIVE: CASE EVENT DATE: 20210521
